FAERS Safety Report 11048792 (Version 1)
Quarter: 2015Q2

REPORT INFORMATION
  Report Type: Spontaneous
  Country: CN (occurrence: CN)
  Receive Date: 20150420
  Receipt Date: 20150420
  Transmission Date: 20150821
  Serious: Yes (Other)
  Sender: FDA-Public Use
  Company Number: CN-JNJFOC-20150409401

PATIENT
  Age: 44 Year
  Sex: Male

DRUGS (1)
  1. MOTRIN [Suspect]
     Active Substance: IBUPROFEN
     Indication: PYREXIA
     Route: 048
     Dates: start: 20141221, end: 20141222

REACTIONS (2)
  - Rash [Recovering/Resolving]
  - Measles [Recovering/Resolving]

NARRATIVE: CASE EVENT DATE: 201412
